FAERS Safety Report 20176919 (Version 1)
Quarter: 2021Q4

REPORT INFORMATION
  Report Type: Spontaneous
  Country: US (occurrence: None)
  Receive Date: 20211209
  Receipt Date: 20211209
  Transmission Date: 20220304
  Serious: No
  Sender: FDA-Public Use
  Company Number: None

PATIENT
  Age: 65 Year
  Sex: Male

DRUGS (1)
  1. IVERMECTIN [Suspect]
     Active Substance: IVERMECTIN

REACTIONS (7)
  - Confusional state [None]
  - Dizziness [None]
  - Vertigo [None]
  - Headache [None]
  - Vision blurred [None]
  - Nightmare [None]
  - Product use in unapproved indication [None]
